FAERS Safety Report 4287547-6 (Version None)
Quarter: 2004Q1

REPORT INFORMATION
  Report Type: 
  Country: None (occurrence: None)
  Receive Date: 20040209
  Receipt Date: 20030723
  Transmission Date: 20041129
  Serious: No
  Sender: FDA-Public Use
  Company Number: US-GLAXOSMITHKLINE-A0417838A

PATIENT
  Age: 61 Year
  Sex: Female

DRUGS (3)
  1. PAXIL CR [Suspect]
     Indication: BREAST CANCER
     Route: 048
     Dates: start: 20030201
  2. SYNTHROID [Concomitant]
  3. ALLEGRA [Concomitant]

REACTIONS (3)
  - DRY MOUTH [None]
  - DYSGEUSIA [None]
  - HYPERHIDROSIS [None]
